FAERS Safety Report 23628225 (Version 1)
Quarter: 2024Q1

REPORT INFORMATION
  Report Type: Spontaneous
  Country: HR (occurrence: HR)
  Receive Date: 20240313
  Receipt Date: 20240313
  Transmission Date: 20240410
  Serious: Yes (Other)
  Sender: FDA-Public Use
  Company Number: None

PATIENT
  Age: 19 Year
  Sex: Female

DRUGS (3)
  1. CLOZAPINE [Suspect]
     Active Substance: CLOZAPINE
     Indication: Product used for unknown indication
     Dosage: 10 GRAM, QD
     Route: 048
     Dates: start: 20231217, end: 20231217
  2. MIDAZOLAM MALEATE [Suspect]
     Active Substance: MIDAZOLAM MALEATE
     Indication: Product used for unknown indication
     Dosage: 270 MILLIGRAM, QD
     Route: 048
     Dates: start: 20231217, end: 20231217
  3. NORMABEL [Suspect]
     Active Substance: DIAZEPAM
     Indication: Product used for unknown indication
     Dosage: 110 MILLIGRAM, QD
     Route: 048
     Dates: start: 20231217, end: 20231217

REACTIONS (4)
  - Suicide attempt [Unknown]
  - Respiratory failure [Unknown]
  - Loss of consciousness [Unknown]
  - Intentional overdose [Unknown]

NARRATIVE: CASE EVENT DATE: 20231217
